FAERS Safety Report 11491769 (Version 3)
Quarter: 2015Q4

REPORT INFORMATION
  Report Type: Spontaneous
  Country: US (occurrence: US)
  Receive Date: 20150910
  Receipt Date: 20151002
  Transmission Date: 20160304
  Serious: Yes (Hospitalization)
  Sender: FDA-Public Use
  Company Number: US-UNITED THERAPEUTICS-UNT-2015-009513

PATIENT
  Age: 66 Year
  Sex: Female
  Weight: 75.74 kg

DRUGS (5)
  1. LETAIRIS [Concomitant]
     Active Substance: AMBRISENTAN
     Indication: PRODUCT USED FOR UNKNOWN INDICATION
  2. TYVASO [Suspect]
     Active Substance: TREPROSTINIL
     Indication: PULMONARY HYPERTENSION
     Dosage: 18-54 ?G, QID
     Dates: start: 20150720, end: 20150901
  3. TYVASO [Suspect]
     Active Substance: TREPROSTINIL
     Dosage: 6 MICROGRAMS, QID
  4. ADEMPAS [Concomitant]
     Active Substance: RIOCIGUAT
     Indication: PRODUCT USED FOR UNKNOWN INDICATION
  5. TYVASO [Suspect]
     Active Substance: TREPROSTINIL
     Dosage: 18-54 ?G, QID

REACTIONS (12)
  - Constipation [Unknown]
  - Dry mouth [Unknown]
  - Aphthous ulcer [Unknown]
  - Nasopharyngitis [Unknown]
  - Pulmonary arterial hypertension [Unknown]
  - Fatigue [Unknown]
  - Presyncope [Unknown]
  - Hypotension [Not Recovered/Not Resolved]
  - Dysgeusia [Unknown]
  - Nasal congestion [Unknown]
  - Rectal prolapse [Unknown]
  - Cardio-respiratory arrest [Unknown]

NARRATIVE: CASE EVENT DATE: 2015
